FAERS Safety Report 11741729 (Version 2)
Quarter: 2016Q1

REPORT INFORMATION
  Report Type: Spontaneous
  Country: US (occurrence: US)
  Receive Date: 20151116
  Receipt Date: 20160119
  Transmission Date: 20160525
  Serious: Yes (Life-Threatening, Hospitalization)
  Sender: FDA-Public Use
  Company Number: US-ASTRAZENECA-2015SF07758

PATIENT
  Age: 21210 Day
  Sex: Female
  Weight: 76.7 kg

DRUGS (34)
  1. BRILINTA [Suspect]
     Active Substance: TICAGRELOR
     Indication: ACUTE CORONARY SYNDROME
     Route: 048
     Dates: start: 20151027, end: 20151030
  2. TENORMIN [Suspect]
     Active Substance: ATENOLOL
     Route: 048
     Dates: start: 20151031
  3. MOTRIN [Concomitant]
     Active Substance: IBUPROFEN
     Indication: PAIN
     Route: 048
     Dates: start: 20151031
  4. SKELAXIN [Concomitant]
     Active Substance: METAXALONE
     Indication: MUSCLE TIGHTNESS
     Route: 048
     Dates: start: 20151031
  5. SOLU-MEDROL [Concomitant]
     Active Substance: METHYLPREDNISOLONE SODIUM SUCCINATE
     Dosage: 80 MG, EVERY 12 HOURS
     Route: 042
     Dates: start: 20151030
  6. ZOFRAN [Concomitant]
     Active Substance: ONDANSETRON HYDROCHLORIDE
     Indication: VOMITING
     Route: 048
     Dates: start: 20151031
  7. SODIUM CHLORIDE. [Concomitant]
     Active Substance: SODIUM CHLORIDE
     Route: 042
     Dates: start: 20151030
  8. SODIUM CHLORIDE. [Concomitant]
     Active Substance: SODIUM CHLORIDE
     Route: 042
     Dates: start: 20151031
  9. VITAMIN B12 [Concomitant]
     Active Substance: CYANOCOBALAMIN
     Route: 030
  10. ZOFRAN [Concomitant]
     Active Substance: ONDANSETRON HYDROCHLORIDE
     Indication: NAUSEA
     Route: 048
     Dates: start: 20151031
  11. FISH OIL [Concomitant]
     Active Substance: FISH OIL
     Dosage: TWO TIMES A DAY
  12. SYNTHROID [Concomitant]
     Active Substance: LEVOTHYROXINE SODIUM
     Route: 048
     Dates: start: 20151031
  13. ALPRAZOLAM. [Concomitant]
     Active Substance: ALPRAZOLAM
  14. XANAX [Concomitant]
     Active Substance: ALPRAZOLAM
     Route: 048
     Dates: start: 20151031
  15. PEPCID [Concomitant]
     Active Substance: FAMOTIDINE
     Route: 042
     Dates: start: 20151030
  16. TENORMIN [Suspect]
     Active Substance: ATENOLOL
     Route: 048
  17. LIPITOR [Concomitant]
     Active Substance: ATORVASTATIN CALCIUM
     Route: 048
     Dates: start: 20151031
  18. EFFIENT [Concomitant]
     Active Substance: PRASUGREL HYDROCHLORIDE
     Route: 048
     Dates: start: 20151031
  19. NITROSTAT [Concomitant]
     Active Substance: NITROGLYCERIN
     Indication: CHEST PAIN
     Route: 060
  20. ASPIRIN. [Concomitant]
     Active Substance: ASPIRIN
     Route: 048
  21. ASPIRIN. [Concomitant]
     Active Substance: ASPIRIN
     Route: 048
  22. BRILINTA [Suspect]
     Active Substance: TICAGRELOR
     Indication: ACUTE CORONARY SYNDROME
     Route: 048
  23. CRESTOR [Suspect]
     Active Substance: ROSUVASTATIN CALCIUM
     Dosage: 5 MG, ONCE A DAY (AT BEDTIME)
     Route: 048
  24. ALBUTEROL SULFATE. [Concomitant]
     Active Substance: ALBUTEROL SULFATE
     Dosage: 90 MCG, 2 PUFFS THREEE TIMES A DAY
     Route: 055
     Dates: start: 20151031
  25. PEPCID [Concomitant]
     Active Substance: FAMOTIDINE
     Route: 042
     Dates: start: 20151030
  26. HEPARIN [Concomitant]
     Active Substance: HEPARIN SODIUM
     Dosage: 4600 UNITS, ONCE ONE
     Route: 042
     Dates: start: 20151030
  27. REGLAN [Concomitant]
     Active Substance: METOCLOPRAMIDE HYDROCHLORIDE
     Route: 042
     Dates: start: 20151030
  28. MULTIPLE VITAMINS [Concomitant]
     Active Substance: VITAMINS
     Route: 048
  29. DUEXIS [Concomitant]
     Active Substance: FAMOTIDINE\IBUPROFEN
     Dosage: 800/26.6 MG, THREE TIMES A DAY
     Route: 048
  30. PLAVIX [Concomitant]
     Active Substance: CLOPIDOGREL BISULFATE
     Route: 048
  31. LOVENOX [Concomitant]
     Active Substance: ENOXAPARIN SODIUM
     Route: 058
     Dates: start: 20151031
  32. PEPCID [Concomitant]
     Active Substance: FAMOTIDINE
     Dosage: 20 MG, EVERY 12 HOURS
     Route: 042
     Dates: start: 20151030
  33. SYNTHROID [Concomitant]
     Active Substance: LEVOTHYROXINE SODIUM
     Route: 048
  34. K-DUR [Concomitant]
     Active Substance: POTASSIUM CHLORIDE
     Route: 048
     Dates: start: 20151030

REACTIONS (20)
  - Diarrhoea [Recovering/Resolving]
  - Pernicious anaemia [Unknown]
  - Dyspnoea [Recovered/Resolved]
  - Angiopathy [Unknown]
  - Hyperlipidaemia [Unknown]
  - Dehydration [Recovering/Resolving]
  - Diabetes mellitus [Unknown]
  - Dyspnoea [Unknown]
  - Drug hypersensitivity [Recovered/Resolved]
  - Gravitational oedema [Unknown]
  - Hypertension [Unknown]
  - Nausea [Unknown]
  - Vomiting [Recovering/Resolving]
  - Anxiety [Unknown]
  - Asthenia [Recovered/Resolved]
  - Hypokalaemia [Unknown]
  - Secondary hypothyroidism [Unknown]
  - Somnolence [Unknown]
  - Tobacco abuse [Unknown]
  - Rash generalised [Recovered/Resolved]

NARRATIVE: CASE EVENT DATE: 20151028
